FAERS Safety Report 22180448 (Version 6)
Quarter: 2023Q2

REPORT INFORMATION
  Report Type: Spontaneous
  Country: FR (occurrence: FR)
  Receive Date: 20230406
  Receipt Date: 20230626
  Transmission Date: 20230722
  Serious: Yes (Hospitalization, Other)
  Sender: FDA-Public Use
  Company Number: FR-BIOGARAN-B23000551

PATIENT
  Age: 38 Year
  Sex: Female

DRUGS (34)
  1. CYAMEMAZINE [Suspect]
     Active Substance: CYAMEMAZINE
     Indication: Sedation
     Dosage: 150 MILLIGRAM, QD
     Route: 065
     Dates: start: 20220422
  2. LAMOTRIGINE [Interacting]
     Active Substance: LAMOTRIGINE
     Indication: Personality disorder
     Dosage: 25 MILLIGRAM, QD
     Route: 065
     Dates: start: 20220608, end: 20220622
  3. LAMOTRIGINE [Interacting]
     Active Substance: LAMOTRIGINE
     Indication: Impulsive behaviour
     Dosage: 50 MILLIGRAM, QD
     Route: 065
     Dates: start: 20220623, end: 20220626
  4. LAMOTRIGINE [Interacting]
     Active Substance: LAMOTRIGINE
     Dosage: 75 MILLIGRAM, QD
     Route: 065
     Dates: start: 20220701, end: 20220705
  5. ARIPIPRAZOLE [Interacting]
     Active Substance: ARIPIPRAZOLE
     Indication: Personality disorder
     Dosage: 5 MG, QD
     Route: 065
     Dates: start: 20220610, end: 20220611
  6. ARIPIPRAZOLE [Interacting]
     Active Substance: ARIPIPRAZOLE
     Indication: Impulsive behaviour
     Dosage: 10 MG, QD
     Route: 065
     Dates: start: 20220612, end: 20220612
  7. ARIPIPRAZOLE [Interacting]
     Active Substance: ARIPIPRAZOLE
     Dosage: 15 MG, QD
     Route: 065
     Dates: start: 20220613, end: 20220623
  8. ARIPIPRAZOLE [Interacting]
     Active Substance: ARIPIPRAZOLE
     Dosage: 30 MG, QD
     Route: 065
     Dates: start: 20220624, end: 20220705
  9. OLANZAPINE [Suspect]
     Active Substance: OLANZAPINE
     Indication: Antipsychotic therapy
     Dosage: 10 MG, QD
     Route: 065
  10. OLANZAPINE [Suspect]
     Active Substance: OLANZAPINE
     Dosage: 10 MG, QD
     Route: 065
  11. OLANZAPINE [Suspect]
     Active Substance: OLANZAPINE
     Dosage: 10 MG, QD
     Route: 065
     Dates: start: 2021, end: 2022
  12. OLANZAPINE [Suspect]
     Active Substance: OLANZAPINE
     Dosage: 10 MG, QD
     Route: 065
     Dates: start: 20220706, end: 20220706
  13. OLANZAPINE [Suspect]
     Active Substance: OLANZAPINE
     Dosage: 20 MG, QD
     Route: 065
     Dates: start: 20220727, end: 20220826
  14. QUETIAPINE [Suspect]
     Active Substance: QUETIAPINE
     Indication: Antipsychotic therapy
     Dosage: 400 MG, QD
     Route: 065
  15. QUETIAPINE [Suspect]
     Active Substance: QUETIAPINE
     Dosage: 400 MG, QD
     Route: 065
  16. QUETIAPINE [Suspect]
     Active Substance: QUETIAPINE
     Dosage: 400 MG, QD
     Route: 065
     Dates: start: 202203, end: 20220605
  17. QUETIAPINE [Suspect]
     Active Substance: QUETIAPINE
     Dosage: 400 MG, QD
     Route: 065
     Dates: start: 20220422, end: 20220426
  18. QUETIAPINE [Suspect]
     Active Substance: QUETIAPINE
     Dosage: 300 MG, QD
     Route: 065
     Dates: start: 20220528, end: 20220528
  19. AMISULPRIDE [Suspect]
     Active Substance: AMISULPRIDE
     Indication: Antipsychotic therapy
     Dosage: 50 MG, QD
     Route: 065
     Dates: start: 202203, end: 20220422
  20. AMISULPRIDE [Suspect]
     Active Substance: AMISULPRIDE
     Dosage: 50 MG, QD
     Route: 065
     Dates: start: 20220422, end: 20220422
  21. MIRTAZAPINE [Interacting]
     Active Substance: MIRTAZAPINE
     Indication: Depressive symptom
     Dosage: 15 MG, QD
     Route: 065
  22. MIRTAZAPINE [Interacting]
     Active Substance: MIRTAZAPINE
     Indication: Insomnia
     Dosage: 7.5 MG, QD
     Route: 065
     Dates: start: 20220610, end: 20220611
  23. MIRTAZAPINE [Interacting]
     Active Substance: MIRTAZAPINE
     Dosage: 15 MG, QD
     Route: 065
     Dates: start: 20220612, end: 20220622
  24. MIRTAZAPINE [Interacting]
     Active Substance: MIRTAZAPINE
     Dosage: 30 MG, QD
     Route: 065
     Dates: start: 20220623, end: 20220624
  25. MIRTAZAPINE [Interacting]
     Active Substance: MIRTAZAPINE
     Dosage: 15 MG, QD
     Route: 065
     Dates: start: 2021, end: 2022
  26. ZOPICLONE [Interacting]
     Active Substance: ZOPICLONE
     Indication: Sedation
     Dosage: 7.5 MILLIGRAM, QD
     Route: 065
     Dates: start: 20220422
  27. PAROXETINE [Suspect]
     Active Substance: PAROXETINE
     Indication: Depressive symptom
     Dosage: 20 MG, QD
     Route: 065
     Dates: start: 20220423, end: 20220423
  28. PAROXETINE [Suspect]
     Active Substance: PAROXETINE
     Dosage: 40 MG, QD
     Route: 065
     Dates: start: 20220426, end: 20220610
  29. PAROXETINE [Suspect]
     Active Substance: PAROXETINE
     Dosage: 20 MG, QD
     Route: 065
     Dates: start: 20220611, end: 20220612
  30. PAROXETINE [Suspect]
     Active Substance: PAROXETINE
     Dosage: 10 MG, QD
     Route: 065
     Dates: start: 20220613, end: 20220625
  31. TROLNITRATE [Suspect]
     Active Substance: TROLNITRATE
     Indication: Sedative therapy
     Dosage: 30 MILLIGRAM, QD
     Route: 065
     Dates: start: 20220422
  32. DIAZEPAM [Interacting]
     Active Substance: DIAZEPAM
     Indication: Sedation
     Dosage: 30 MILLIGRAM, QD
     Route: 065
     Dates: start: 20220422
  33. NEXPLANON [Concomitant]
     Active Substance: ETONOGESTREL
     Indication: Contraception
     Dosage: UNK
     Route: 023
     Dates: start: 2021
  34. ETONOGESTREL [Concomitant]
     Active Substance: ETONOGESTREL
     Indication: Contraception
     Dosage: UNK (INTRA-UTERINE IMPLANT)
     Route: 065

REACTIONS (20)
  - Suicidal ideation [Recovered/Resolved]
  - Depressive symptom [Recovered/Resolved]
  - Delirium [Recovered/Resolved]
  - Hallucination, visual [Recovered/Resolved]
  - Dystonia [Unknown]
  - Condition aggravated [Recovered/Resolved]
  - Delusion [Recovered/Resolved]
  - Affect lability [Recovered/Resolved]
  - Disorganised speech [Recovered/Resolved]
  - Abnormal behaviour [Recovered/Resolved]
  - Insomnia [Recovered/Resolved]
  - Thinking abnormal [Unknown]
  - Impulsive behaviour [Recovered/Resolved]
  - Agitation [Recovered/Resolved]
  - Psychotic symptom [Recovered/Resolved]
  - Confusional state [Recovered/Resolved]
  - Weight increased [Unknown]
  - Drug ineffective [Unknown]
  - Drug interaction [Unknown]
  - Product use in unapproved indication [Unknown]

NARRATIVE: CASE EVENT DATE: 20220528
